FAERS Safety Report 9537085 (Version 2)
Quarter: 2013Q3

REPORT INFORMATION
  Report Type: Spontaneous
  Country: US (occurrence: US)
  Receive Date: 20130919
  Receipt Date: 20130919
  Transmission Date: 20140515
  Serious: Yes (Other)
  Sender: FDA-Public Use
  Company Number: US-ROCHE-1240850

PATIENT
  Sex: 0

DRUGS (1)
  1. LUCENTIS [Suspect]
     Indication: AGE-RELATED MACULAR DEGENERATION
     Route: 031
     Dates: start: 20130614

REACTIONS (7)
  - Visual acuity reduced [Unknown]
  - Non-infectious endophthalmitis [Unknown]
  - Vitreous floaters [Recovering/Resolving]
  - Non-infectious endophthalmitis [Unknown]
  - Vision blurred [Unknown]
  - Pain [Unknown]
  - Product quality issue [Unknown]
